FAERS Safety Report 8120958-7 (Version None)
Quarter: 2012Q1

REPORT INFORMATION
  Report Type: 
  Country: None (occurrence: None)
  Receive Date: 20120208
  Receipt Date: 20120202
  Transmission Date: 20120608
  Serious: No
  Sender: FDA-Public Use
  Company Number: NL-US-EMD SERONO, INC.-7051331

PATIENT
  Sex: Male

DRUGS (2)
  1. REBIF [Suspect]
     Indication: MULTIPLE SCLEROSIS
     Route: 058
     Dates: start: 20090520, end: 20091103
  2. VITAMIN B-12 [Concomitant]
     Indication: VITAMIN B12 ABNORMAL
     Route: 048
     Dates: start: 20091101

REACTIONS (2)
  - URINARY RETENTION [None]
  - MUSCLE SPASMS [None]
